FAERS Safety Report 8434269-3 (Version None)
Quarter: 2012Q2

REPORT INFORMATION
  Report Type: 
  Country: None (occurrence: None)
  Receive Date: 20120613
  Receipt Date: 20120607
  Transmission Date: 20120825
  Serious: Yes (Hospitalization)
  Sender: FDA-Public Use
  Company Number: CA-CELGENEUS-028-C5013-11032838

PATIENT
  Age: 71 Year
  Sex: Male
  Weight: 56.2 kg

DRUGS (42)
  1. LENALIDOMIDE [Suspect]
     Indication: MULTIPLE MYELOMA
     Dosage: 25 MILLIGRAM
     Route: 048
     Dates: start: 20091110
  2. DEXAMETHASONE [Suspect]
     Dosage: 12 MILLIGRAM
     Route: 065
     Dates: start: 20110120, end: 20110317
  3. PAMIDRONATE DISODIUM [Concomitant]
     Indication: PROPHYLAXIS
     Dosage: 90 MILLIGRAM
     Route: 041
     Dates: start: 20110331
  4. APONADOLOL [Concomitant]
     Indication: ANGINA PECTORIS
     Dosage: 40 MILLIGRAM
     Route: 048
     Dates: start: 19930101, end: 20100121
  5. METOPROLOL TARTRATE [Concomitant]
     Indication: PROPHYLAXIS
     Dosage: 12.5 MILLIGRAM
     Route: 048
     Dates: start: 20100101, end: 20100120
  6. METOPROLOL TARTRATE [Concomitant]
     Dosage: 25 MILLIGRAM
     Route: 048
     Dates: start: 20100121, end: 20100519
  7. LASIX [Concomitant]
     Dosage: 20 MILLIGRAM
     Route: 048
     Dates: start: 20110301, end: 20110323
  8. DEXAMETHASONE [Suspect]
     Indication: MULTIPLE MYELOMA
     Dosage: 40 MILLIGRAM
     Route: 065
     Dates: start: 20091110
  9. DEXAMETHASONE [Suspect]
     Dosage: 12 MILLIGRAM
     Route: 065
     Dates: start: 20110331
  10. COVERSYL PLUS [Concomitant]
     Indication: HYPERTENSION
     Dosage: 4/1.25MG
     Route: 048
     Dates: start: 20090401, end: 20091221
  11. NITROGLYCERIN [Concomitant]
     Dosage: .2 MILLIGRAM
     Route: 065
     Dates: start: 20100101, end: 20101001
  12. RAMIPRIL [Concomitant]
     Dosage: 1.25 MILLIGRAM
     Route: 048
     Dates: start: 20100101, end: 20100211
  13. LENALIDOMIDE [Suspect]
     Dosage: 25 MILLIGRAM
     Route: 048
     Dates: start: 20110224, end: 20110324
  14. APONADOLOL [Concomitant]
     Indication: PROPHYLAXIS
  15. GLYBURIDE [Concomitant]
     Dosage: 80 MILLIGRAM
     Route: 048
     Dates: start: 20100522
  16. RAMIPRIL [Concomitant]
     Dosage: 5 MILLIGRAM
     Route: 048
     Dates: start: 20110211
  17. WARFARIN SODIUM [Concomitant]
     Indication: THROMBOSIS PROPHYLAXIS
     Dosage: 2 MILLIGRAM
     Route: 048
     Dates: start: 20100110, end: 20110121
  18. LASIX [Concomitant]
     Dosage: 20 MILLIGRAM
     Route: 048
     Dates: start: 20110211, end: 20110301
  19. ALDACTONE [Concomitant]
     Dosage: 25 MILLIGRAM
     Route: 048
     Dates: start: 20110211, end: 20110323
  20. ASPIRIN [Concomitant]
     Indication: THROMBOSIS
     Dosage: 81 MILLIGRAM
     Route: 048
     Dates: start: 19930101
  21. ASPIRIN [Concomitant]
     Indication: CORONARY ARTERY DISEASE
  22. APONADOLOL [Concomitant]
     Indication: CORONARY ARTERY DISEASE
  23. SYNTHROID [Concomitant]
     Indication: HYPOTHYROIDISM
     Dosage: .15 MILLIGRAM
     Route: 048
     Dates: start: 20050101
  24. COLACE [Concomitant]
     Indication: CONSTIPATION
     Dosage: 100 MILLIGRAM
     Route: 048
     Dates: start: 20100107
  25. PREDNISONE TAB [Concomitant]
     Dosage: 15 MILLIGRAM
     Route: 048
     Dates: start: 20100204, end: 20100205
  26. LASIX [Concomitant]
     Dosage: 40 MILLIGRAM
     Route: 048
     Dates: start: 20110301
  27. LENALIDOMIDE [Suspect]
     Dosage: 25 MILLIGRAM
     Route: 048
     Dates: end: 20110512
  28. ASPIRIN [Concomitant]
     Indication: PROPHYLAXIS
  29. OMEPRAZOLE [Concomitant]
     Dosage: 20 MILLIGRAM
     Route: 048
     Dates: start: 19990101
  30. IMOVANE [Concomitant]
     Indication: INSOMNIA
     Dosage: 7.5 MILLIGRAM
     Route: 048
     Dates: start: 20100107
  31. METOPROLOL TARTRATE [Concomitant]
     Dosage: 50 MILLIGRAM
     Route: 048
     Dates: start: 20100519
  32. LASIX [Concomitant]
     Dosage: 20 MILLIGRAM
     Route: 048
     Dates: start: 20110303, end: 20110304
  33. ALDACTONE [Concomitant]
     Indication: PROPHYLAXIS
     Dosage: 12.5 MILLIGRAM
     Route: 048
     Dates: start: 20110323, end: 20110405
  34. LIPITOR [Concomitant]
     Dosage: 80 MILLIGRAM
     Route: 048
     Dates: start: 20050101
  35. PREDNISONE TAB [Concomitant]
     Dosage: 10 MILLIGRAM
     Route: 048
     Dates: start: 20100207, end: 20100209
  36. NITROGLYCERIN [Concomitant]
     Dosage: .4 MILLIGRAM
     Route: 048
     Dates: start: 20100101
  37. AMIODARONE HCL [Concomitant]
     Dosage: 200 MILLIGRAM
     Route: 048
     Dates: start: 20101001, end: 20101103
  38. SENOKOT [Concomitant]
     Indication: CONSTIPATION
     Dosage: 17.2 MILLIGRAM
     Route: 048
     Dates: start: 20100109
  39. PREDNISONE TAB [Concomitant]
     Indication: SWELLING
     Dosage: 20 MILLIGRAM
     Route: 048
     Dates: start: 20100201, end: 20100203
  40. PREDNISONE TAB [Concomitant]
     Dosage: 5 MILLIGRAM
     Route: 048
     Dates: start: 20100210, end: 20100211
  41. GLYBURIDE [Concomitant]
     Dosage: 80 MILLIGRAM
     Route: 048
     Dates: start: 20100101, end: 20100211
  42. LASIX [Concomitant]
     Dosage: 20 MILLIGRAM
     Route: 048
     Dates: start: 20110313

REACTIONS (2)
  - CONGESTIVE CARDIOMYOPATHY [None]
  - BACK PAIN [None]
